FAERS Safety Report 4453466-5 (Version None)
Quarter: 2004Q3

REPORT INFORMATION
  Report Type: 
  Country: None (occurrence: None)
  Receive Date: 20040920
  Receipt Date: 20040715
  Transmission Date: 20050211
  Serious: Yes (Hospitalization)
  Sender: FDA-Public Use
  Company Number: CA-MERCK-0407CAN00075

PATIENT
  Age: 74 Year
  Sex: Female
  Weight: 109 kg

DRUGS (14)
  1. ACETAMINOPHEN [Concomitant]
     Route: 065
  2. ALENDRONATE SODIUM [Concomitant]
     Route: 048
  3. ALLOPURINOL [Concomitant]
     Route: 048
  4. AMILORIDE HYDROCHLORIDE AND HYDROCHLOROTHIAZIDE [Concomitant]
     Route: 048
     Dates: end: 20040809
  5. COLCHICINE [Concomitant]
     Route: 048
     Dates: end: 20040801
  6. DIGOXIN [Concomitant]
     Route: 048
  7. ZETIA [Suspect]
     Indication: BLOOD TRIGLYCERIDES INCREASED
     Route: 048
     Dates: start: 20040630, end: 20040716
  8. FUROSEMIDE [Concomitant]
     Route: 048
  9. IRBESARTAN [Concomitant]
     Route: 048
     Dates: end: 20040809
  10. ISOSORBIDE DINITRATE [Concomitant]
     Route: 048
     Dates: end: 20040801
  11. NITROGLYCERIN [Concomitant]
     Route: 065
  12. OXYBUTYNIN [Concomitant]
     Route: 048
  13. SULFAMETHOXAZOLE AND TRIMETHOPRIM [Concomitant]
     Route: 048
  14. WARFARIN SODIUM [Concomitant]
     Indication: ATRIAL FIBRILLATION
     Route: 048

REACTIONS (11)
  - ACTIVATED PARTIAL THROMBOPLASTIN TIME PROLONGED [None]
  - ARTHRALGIA [None]
  - BLOOD CREATININE INCREASED [None]
  - CHILLS [None]
  - CONFUSIONAL STATE [None]
  - DECREASED APPETITE [None]
  - INTERNATIONAL NORMALISED RATIO INCREASED [None]
  - NAUSEA [None]
  - PANCYTOPENIA [None]
  - PYREXIA [None]
  - VOMITING [None]
